FAERS Safety Report 12949911 (Version 1)
Quarter: 2016Q4

REPORT INFORMATION
  Report Type: Spontaneous
  Country: US (occurrence: US)
  Receive Date: 20161116
  Receipt Date: 20161116
  Transmission Date: 20170207
  Serious: Yes (Life-Threatening, Hospitalization)
  Sender: FDA-Public Use
  Company Number: None

PATIENT
  Age: 57 Year
  Sex: Female
  Weight: 75.82 kg

DRUGS (2)
  1. ORENCIA [Suspect]
     Active Substance: ABATACEPT
     Indication: RHEUMATOID ARTHRITIS
     Dosage: UNREADABLE THE ROUTE
     Route: 042
     Dates: start: 20161020
  2. ORENCIA [Suspect]
     Active Substance: ABATACEPT
     Route: 048
     Dates: start: 20161101

REACTIONS (2)
  - Perforation [None]
  - Diverticulitis [None]

NARRATIVE: CASE EVENT DATE: 20161110
